FAERS Safety Report 9123336 (Version 1)
Quarter: 2013Q1

REPORT INFORMATION
  Report Type: Report from Study
  Country: JP (occurrence: JP)
  Receive Date: 20130227
  Receipt Date: 20130227
  Transmission Date: 20140127
  Serious: Yes (Death)
  Sender: FDA-Public Use
  Company Number: JP-SANOFI-AVENTIS-2013SA006240

PATIENT
  Age: 72 Year
  Sex: Male

DRUGS (3)
  1. CISPLATIN [Suspect]
     Indication: LARYNGEAL CANCER
     Dosage: RECEIVED ON DAY 1.
     Route: 065
  2. FLUOROURACIL [Suspect]
     Indication: LARYNGEAL CANCER
     Dosage: RECEIVED ON DAY 1-5.
     Route: 065
  3. TAXOTERE [Suspect]
     Indication: LARYNGEAL CANCER
     Dosage: RECEIVED ON DAY 1
     Route: 065

REACTIONS (7)
  - Bone marrow failure [Fatal]
  - Agranulocytosis [Fatal]
  - Pneumonia [Fatal]
  - Staphylococcal infection [Fatal]
  - Fungal infection [Fatal]
  - Acute respiratory distress syndrome [Fatal]
  - Septic shock [Fatal]
